FAERS Safety Report 7202643-9 (Version None)
Quarter: 2010Q4

REPORT INFORMATION
  Report Type: 
  Country: None (occurrence: None)
  Receive Date: 20101229
  Receipt Date: 20101216
  Transmission Date: 20110411
  Serious: No
  Sender: FDA-Public Use
  Company Number: US-PFIZER INC-2010174687

PATIENT
  Sex: Female
  Weight: 87.089 kg

DRUGS (4)
  1. CELEBREX [Suspect]
     Indication: TENDONITIS
     Dosage: 200 MG, 1X/DAY
     Route: 048
     Dates: start: 20101207, end: 20101215
  2. ENALAPRIL MALEATE [Concomitant]
     Dosage: 2.5 MG, UNK
  3. CRESTOR [Concomitant]
     Dosage: 5 MG, UNK
  4. JANUMET [Concomitant]
     Indication: TYPE 2 DIABETES MELLITUS
     Dosage: 50MG/500 MG

REACTIONS (3)
  - DRY SKIN [None]
  - PRURITUS GENERALISED [None]
  - SKIN FISSURES [None]
